FAERS Safety Report 19521713 (Version 1)
Quarter: 2021Q3

REPORT INFORMATION
  Report Type: Spontaneous
  Country: DE (occurrence: DE)
  Receive Date: 20210712
  Receipt Date: 20210712
  Transmission Date: 20211014
  Serious: Yes (Hospitalization, Other)
  Sender: FDA-Public Use
  Company Number: DE-PFIZER INC-2021795618

PATIENT
  Age: 70 Year
  Sex: Male
  Weight: 89 kg

DRUGS (12)
  1. TORASEMID [Suspect]
     Active Substance: TORSEMIDE
     Dosage: 10 MG, 2?0?0?0, TABLETS
     Route: 048
  2. INSULIN LISPRO [Suspect]
     Active Substance: INSULIN LISPRO
     Dosage: 1 IE, 3?3?2?0, CYLINDER AMPOULES
     Route: 058
  3. INSULIN DEGLUDEC [Suspect]
     Active Substance: INSULIN DEGLUDEC
     Dosage: 1 IU, 0?0?15?0, PRE?FILLED SYRINGES
     Route: 058
  4. EMPAGLIFLOZIN [Suspect]
     Active Substance: EMPAGLIFLOZIN
     Dosage: 10 MG, 1?0?0?0, TABLETS
     Route: 048
  5. DULAGLUTIDE. [Suspect]
     Active Substance: DULAGLUTIDE
     Route: 058
  6. EPLERENONE. [Suspect]
     Active Substance: EPLERENONE
     Dosage: 25 MG, 1?0?0?0, TABLETS
     Route: 048
  7. SITAGLIPTIN [Suspect]
     Active Substance: SITAGLIPTIN
     Dosage: 50 MG, 1?0?0?0, TABLETS
     Route: 048
  8. ATORVASTATIN [Concomitant]
     Active Substance: ATORVASTATIN
     Dosage: 40 MG, 0?0?0.5?0, TABLETS
     Route: 048
  9. DALTEPARIN [Concomitant]
     Active Substance: DALTEPARIN
     Dosage: 2500 IU, 0?0?1?0, PRE?FILLED SYRINGES
     Route: 058
  10. ACETYLSALICYLSAEURE [Concomitant]
     Active Substance: ASPIRIN
     Dosage: 100 MG, 0?1?0?0, TABLETS
     Route: 048
  11. BISOPROLOL [Concomitant]
     Active Substance: BISOPROLOL
     Dosage: 5 MG, 0.5?0?0.5?0, TABLETS
     Route: 048
  12. RAMIPRIL. [Suspect]
     Active Substance: RAMIPRIL
     Dosage: 2.5 MG, 0.5?0?0.5?0, TABLETS
     Route: 048

REACTIONS (2)
  - Skin ulcer [Recovering/Resolving]
  - Cellulitis [Recovering/Resolving]
